FAERS Safety Report 17243199 (Version 1)
Quarter: 2019Q4

REPORT INFORMATION
  Report Type: Spontaneous
  Country: US (occurrence: US)
  Receive Date: 20191212
  Receipt Date: 20191212
  Transmission Date: 20200122
  Serious: Yes (Hospitalization)
  Sender: FDA-Public Use
  Company Number: None

PATIENT
  Age: 50 Year
  Sex: Female

DRUGS (2)
  1. ACTEMRA [Suspect]
     Active Substance: TOCILIZUMAB
     Dosage: ?          OTHER FREQUENCY:EVERY2 WEEK ;?
     Route: 058
  2. NABUMETONE. [Concomitant]
     Active Substance: NABUMETONE

REACTIONS (2)
  - Upper limb fracture [None]
  - Therapy cessation [None]
